FAERS Safety Report 5227352-7 (Version None)
Quarter: 2007Q1

REPORT INFORMATION
  Report Type: 
  Country: None (occurrence: None)
  Receive Date: 20070202
  Receipt Date: 20070129
  Transmission Date: 20070707
  Serious: Yes (Death)
  Sender: FDA-Public Use
  Company Number: 2007PK00170

PATIENT
  Age: 39 Year
  Sex: Female

DRUGS (2)
  1. MEPIVACAIN [Suspect]
     Indication: ANAESTHESIA
  2. BUPIVACAINE [Suspect]
     Indication: ANAESTHESIA

REACTIONS (3)
  - BRADYCARDIA [None]
  - CARDIAC ARREST [None]
  - CONVULSION [None]
